FAERS Safety Report 22365295 (Version 3)
Quarter: 2024Q1

REPORT INFORMATION
  Report Type: Report from Study
  Country: BR (occurrence: BR)
  Receive Date: 20230525
  Receipt Date: 20240123
  Transmission Date: 20240410
  Serious: Yes (Other)
  Sender: FDA-Public Use
  Company Number: BR-JNJFOC-20230548241

PATIENT
  Age: 44 Year
  Sex: Male
  Weight: 74 kg

DRUGS (4)
  1. REMICADE [Suspect]
     Active Substance: INFLIXIMAB
     Indication: Ankylosing spondylitis
     Dosage: DOSE WAS REPORTED AS 3,6 AMPOULES
     Route: 041
     Dates: start: 20221013
  2. REMICADE [Suspect]
     Active Substance: INFLIXIMAB
     Dosage: 8 VIALS
     Route: 041
     Dates: start: 20230126
  3. REMICADE [Suspect]
     Active Substance: INFLIXIMAB
     Dosage: 4 AMPOULES
     Route: 041
  4. AMOXICILLIN\CLAVULANATE POTASSIUM [Suspect]
     Active Substance: AMOXICILLIN\CLAVULANATE POTASSIUM
     Indication: Leptospirosis
     Dosage: 1 TABLET EVERY 8 HOURS
     Route: 065

REACTIONS (3)
  - Leptospirosis [Unknown]
  - Vomiting [Unknown]
  - Dengue fever [Unknown]

NARRATIVE: CASE EVENT DATE: 20230427
